FAERS Safety Report 14375022 (Version 2)
Quarter: 2018Q2

REPORT INFORMATION
  Report Type: Spontaneous
  Country: JP (occurrence: JP)
  Receive Date: 20180111
  Receipt Date: 20180405
  Transmission Date: 20180711
  Serious: Yes (Other)
  Sender: FDA-Public Use
  Company Number: JP-SUN PHARMACEUTICAL INDUSTRIES LTD-2017RR-159613

PATIENT
  Age: 75 Year
  Sex: Male

DRUGS (6)
  1. CAPECITABINE. [Suspect]
     Active Substance: CAPECITABINE
     Indication: RECTAL CANCER
     Dosage: 2000 MG/M2, DAILY, DAY 1-14
     Route: 065
     Dates: start: 201304
  2. OXALIPLATIN. [Suspect]
     Active Substance: OXALIPLATIN
     Dosage: 140 MG, SINGLE
     Route: 065
  3. CAPECITABINE. [Suspect]
     Active Substance: CAPECITABINE
     Dosage: 2400 MG, UNK
     Route: 065
  4. OXALIPLATIN. [Suspect]
     Active Substance: OXALIPLATIN
     Indication: RECTAL CANCER
     Dosage: 130 MG/M2, DAY 1, 1 COURSE OF 21 DAYS
     Route: 065
  5. CAPECITABINE. [Suspect]
     Active Substance: CAPECITABINE
     Dosage: 1800 MG, UNK
     Route: 065
  6. CAPECITABINE. [Suspect]
     Active Substance: CAPECITABINE
     Dosage: 1200 MG, UNK
     Route: 065

REACTIONS (11)
  - Hepatotoxicity [Recovered/Resolved]
  - Alcoholic liver disease [Recovered/Resolved]
  - Blood bilirubin increased [Unknown]
  - Carcinoembryonic antigen increased [Recovered/Resolved]
  - Venoocclusive liver disease [Unknown]
  - Ascites [Recovered/Resolved]
  - Malaise [Unknown]
  - Decreased appetite [Unknown]
  - Splenomegaly [Not Recovered/Not Resolved]
  - Thrombocytopenia [Not Recovered/Not Resolved]
  - Portal hypertension [Unknown]
